FAERS Safety Report 8554245-X (Version None)
Quarter: 2012Q3

REPORT INFORMATION
  Report Type: 
  Country: None (occurrence: None)
  Receive Date: 20120731
  Receipt Date: 20120716
  Transmission Date: 20120928
  Serious: Yes (Other)
  Sender: FDA-Public Use
  Company Number: NL-WATSON-2012-13393

PATIENT
  Sex: Male

DRUGS (1)
  1. IBUPROFEN [Suspect]
     Indication: INVESTIGATION
     Dosage: 400 MG, BID
     Route: 048

REACTIONS (1)
  - GASTROINTESTINAL INJURY [None]
